FAERS Safety Report 9097548 (Version 2)
Quarter: 2013Q1

REPORT INFORMATION
  Report Type: Spontaneous
  Country: FR (occurrence: FR)
  Receive Date: 20130212
  Receipt Date: 20130305
  Transmission Date: 20140127
  Serious: Yes (Death, Life-Threatening, Hospitalization)
  Sender: FDA-Public Use
  Company Number: FR-GILEAD-2013-0069561

PATIENT
  Age: 66 None
  Sex: Male

DRUGS (12)
  1. AMBRISENTAN [Suspect]
     Indication: PULMONARY ARTERIAL HYPERTENSION
     Dosage: 5MG PER DAY
     Route: 048
     Dates: start: 20130104, end: 20130129
  2. PREVISCAN [Suspect]
     Indication: ATRIAL FIBRILLATION
     Dosage: 20MG PER DAY
     Route: 048
     Dates: start: 20130121, end: 20130129
  3. KARDEGIC [Concomitant]
     Indication: ARTERITIS
     Dosage: UNK
     Route: 048
     Dates: end: 20130120
  4. AMLOR [Concomitant]
     Indication: HYPERTENSION
     Dosage: 5MG PER DAY
     Route: 048
     Dates: start: 2011, end: 20130129
  5. LASILIX                            /00032601/ [Concomitant]
     Indication: PULMONARY ARTERIAL HYPERTENSION
     Dosage: 40MG TWICE PER DAY
     Route: 048
     Dates: start: 2013, end: 20130129
  6. CORDARONE [Concomitant]
     Indication: ATRIAL FIBRILLATION
     Dosage: 200MG TWICE PER DAY
     Route: 048
     Dates: start: 20130122, end: 20130129
  7. ODRIK [Concomitant]
     Indication: HYPERTENSION
     Dosage: 2MG PER DAY
     Route: 048
     Dates: start: 2011, end: 20130129
  8. TAHOR [Concomitant]
     Indication: ARTERITIS
     Dosage: 10MG PER DAY
     Route: 048
     Dates: start: 2010, end: 20130129
  9. GLUCOPHAGE [Concomitant]
     Indication: DIABETES MELLITUS
     Dosage: 850MG THREE TIMES PER DAY
     Route: 048
     Dates: start: 2009, end: 20130129
  10. LANTUS [Concomitant]
     Indication: DIABETES MELLITUS
     Dosage: 14UNIT PER DAY
     Route: 058
     Dates: start: 2009, end: 20130129
  11. ZYRTEC [Concomitant]
     Dosage: UNK
     Route: 048
     Dates: end: 20130129
  12. INEXIUM /01479302/ [Concomitant]
     Dosage: 14IU PER DAY
     Route: 048
     Dates: end: 20130129

REACTIONS (3)
  - Cerebral haemorrhage [Fatal]
  - Coma [Fatal]
  - Atrial fibrillation [Unknown]
